FAERS Safety Report 20845825 (Version 5)
Quarter: 2022Q4

REPORT INFORMATION
  Report Type: Spontaneous
  Country: US (occurrence: US)
  Receive Date: 20220518
  Receipt Date: 20221002
  Transmission Date: 20230113
  Serious: Yes (Hospitalization)
  Sender: FDA-Public Use
  Company Number: US-PFIZER INC-202100933638

PATIENT
  Age: 63 Year
  Sex: Female
  Weight: 211.39 kg

DRUGS (2)
  1. SOMATROPIN [Suspect]
     Active Substance: SOMATROPIN
     Indication: Hypopituitarism
     Dosage: 0.6
     Dates: start: 2019
  2. SOMATROPIN [Suspect]
     Active Substance: SOMATROPIN
     Dosage: 0.4, DAILY (EVERY NIGHT)
     Dates: start: 2020

REACTIONS (3)
  - Infection [Unknown]
  - Off label use [Unknown]
  - Overweight [Unknown]
